FAERS Safety Report 8836697 (Version 2)
Quarter: 2013Q1

REPORT INFORMATION
  Report Type: Spontaneous
  Country: US (occurrence: None)
  Receive Date: 20121010
  Receipt Date: 20121026
  Transmission Date: 20140127
  Serious: Yes (Hospitalization, Other)
  Sender: FDA-Public Use
  Company Number: 2012AP003309

PATIENT
  Age: 26 Year
  Sex: Male

DRUGS (8)
  1. QUETIAPINE [Suspect]
     Indication: OVERDOSE
  2. CLOTIAPINE [Suspect]
  3. TRAZODONE (TRAZODONE) [Suspect]
  4. ZUCLOPENTHIXOL (ZUCLOPENTHIXOL) [Concomitant]
  5. LAMOTRIGINE (LAMOTRIGINE) [Concomitant]
  6. LORAZEPAM (LORAZEPAM) [Concomitant]
  7. ESCITALOPRAM (ESCITALOPRAM) [Concomitant]
  8. ZUCLOPENTHIXOL (ZUCLOPENTHIXOL) [Concomitant]

REACTIONS (3)
  - Gastrointestinal necrosis [None]
  - Overdose [None]
  - Necrotising colitis [None]
